FAERS Safety Report 9248030 (Version 3)
Quarter: 2013Q3

REPORT INFORMATION
  Report Type: Spontaneous
  Country: US (occurrence: US)
  Receive Date: 20130423
  Receipt Date: 20130930
  Transmission Date: 20140515
  Serious: Yes (Disabling)
  Sender: FDA-Public Use
  Company Number: US-ASTRAZENECA-2013SE27192

PATIENT
  Age: 45 Year
  Sex: Female
  Weight: 73.9 kg

DRUGS (16)
  1. NEXIUM [Suspect]
     Indication: GASTROOESOPHAGEAL REFLUX DISEASE
     Dosage: ONCE
     Route: 048
  2. NEXIUM [Suspect]
     Indication: DYSPEPSIA
     Dosage: ONCE
     Route: 048
  3. NEXIUM [Suspect]
     Indication: GASTROOESOPHAGEAL REFLUX DISEASE
     Route: 048
     Dates: start: 20061101
  4. NEXIUM [Suspect]
     Indication: DYSPEPSIA
     Route: 048
     Dates: start: 20061101
  5. NEXIUM [Suspect]
     Indication: GASTROOESOPHAGEAL REFLUX DISEASE
     Route: 048
     Dates: start: 20090130
  6. NEXIUM [Suspect]
     Indication: DYSPEPSIA
     Route: 048
     Dates: start: 20090130
  7. PRILOSEC [Suspect]
     Indication: DYSPEPSIA
     Route: 048
  8. PRILOSEC [Suspect]
     Indication: GASTROOESOPHAGEAL REFLUX DISEASE
     Route: 048
  9. TUMS [Concomitant]
     Indication: GASTROOESOPHAGEAL REFLUX DISEASE
  10. TUMS [Concomitant]
     Indication: DYSPEPSIA
  11. CITALOPRAM [Concomitant]
     Indication: DEPRESSION
     Dates: start: 20090130
  12. DARVOCET-N 100 [Concomitant]
     Indication: PAIN
     Dates: start: 20090130
  13. GLYBURIDE [Concomitant]
  14. BENICAR [Concomitant]
  15. LIPITOR [Concomitant]
  16. MELOXICAM [Concomitant]

REACTIONS (6)
  - Musculoskeletal disorder [Unknown]
  - Dystonia [Unknown]
  - Osteoporosis [Unknown]
  - Bone disorder [Unknown]
  - Multiple fractures [Unknown]
  - Glucose tolerance impaired [Unknown]
